FAERS Safety Report 13966441 (Version 1)
Quarter: 2017Q3

REPORT INFORMATION
  Report Type: Spontaneous
  Country: RU (occurrence: RU)
  Receive Date: 20170913
  Receipt Date: 20170913
  Transmission Date: 20171128
  Serious: Yes (Hospitalization, Other)
  Sender: FDA-Public Use
  Company Number: RU-ASTRAZENECA-2017SE92649

PATIENT
  Age: 66 Year
  Sex: Female
  Weight: 90 kg

DRUGS (9)
  1. BRILINTA [Suspect]
     Active Substance: TICAGRELOR
     Indication: MYOCARDIAL INFARCTION
     Route: 048
     Dates: start: 201703
  2. BRILINTA [Suspect]
     Active Substance: TICAGRELOR
     Indication: STENT PLACEMENT
     Route: 048
     Dates: start: 201703
  3. ATORVASTATIN [Concomitant]
     Active Substance: ATORVASTATIN
  4. ACETYLSALICYLIC ACID [Concomitant]
     Active Substance: ASPIRIN
  5. VEROSPIRON [Concomitant]
     Active Substance: SPIRONOLACTONE
  6. PREDUCTAL [Concomitant]
     Active Substance: TRIMETAZIDINE DIHYDROCHLORIDE
  7. DIABETON [Concomitant]
     Active Substance: GLICLAZIDE
  8. BISOPROLOL [Concomitant]
     Active Substance: BISOPROLOL
  9. IVABRADINE [Concomitant]
     Active Substance: IVABRADINE

REACTIONS (1)
  - Complication associated with device [Unknown]

NARRATIVE: CASE EVENT DATE: 201706
